FAERS Safety Report 7624741-8 (Version None)
Quarter: 2011Q3

REPORT INFORMATION
  Report Type: 
  Country: None (occurrence: None)
  Receive Date: 20110720
  Receipt Date: 20110705
  Transmission Date: 20111222
  Serious: Yes (Life-Threatening, Hospitalization)
  Sender: FDA-Public Use
  Company Number: CO-BAYER-2011-057713

PATIENT
  Age: 41 Year
  Sex: Male
  Weight: 71 kg

DRUGS (1)
  1. ASPIRIN [Suspect]
     Indication: ANGINA PECTORIS
     Dosage: UNK UNK, ONCE
     Dates: start: 20110621, end: 20110621

REACTIONS (4)
  - CHEST PAIN [None]
  - VOMITING [None]
  - DIARRHOEA [None]
  - HYPERHIDROSIS [None]
